FAERS Safety Report 23633337 (Version 3)
Quarter: 2024Q3

REPORT INFORMATION
  Report Type: Spontaneous
  Country: US (occurrence: US)
  Receive Date: 20240314
  Receipt Date: 20240812
  Transmission Date: 20241017
  Serious: Yes (Other)
  Sender: INCYTE
  Company Number: US-INCYTE CORPORATION-2024IN002681

PATIENT

DRUGS (3)
  1. JAKAFI [Suspect]
     Active Substance: RUXOLITINIB
     Indication: Myeloproliferative neoplasm
     Dosage: 25 MILLIGRAM, BID
     Route: 048
     Dates: start: 202203
  2. JAKAFI [Suspect]
     Active Substance: RUXOLITINIB
     Dosage: 25 MILLIGRAM, QD
     Route: 048
     Dates: start: 202203
  3. PEGASYS [Concomitant]
     Active Substance: PEGINTERFERON ALFA-2A
     Indication: Product used for unknown indication
     Dosage: SDV (1ML/VL)
     Route: 065

REACTIONS (6)
  - Neuropathy peripheral [Unknown]
  - Pain [Unknown]
  - Fatigue [Unknown]
  - Decreased activity [Unknown]
  - Oedema [Unknown]
  - Off label use [Unknown]

NARRATIVE: CASE EVENT DATE: 20220301
